FAERS Safety Report 6400503-4 (Version None)
Quarter: 2009Q4

REPORT INFORMATION
  Report Type: 
  Country: None (occurrence: None)
  Receive Date: 20091014
  Receipt Date: 20091001
  Transmission Date: 20100525
  Serious: Yes (Death, Life-Threatening, Hospitalization)
  Sender: FDA-Public Use
  Company Number: JP-AMGEN-US361842

PATIENT
  Sex: Female

DRUGS (12)
  1. ENBREL [Suspect]
     Indication: RHEUMATOID ARTHRITIS
     Route: 058
     Dates: start: 20070611, end: 20090803
  2. METHYLPREDNISOLONE [Suspect]
     Indication: RHEUMATOID ARTHRITIS
     Route: 048
     Dates: start: 20070112
  3. METHYLPREDNISOLONE [Suspect]
     Route: 048
     Dates: start: 20070202, end: 20070622
  4. METHYLPREDNISOLONE [Suspect]
     Route: 048
     Dates: start: 20070623, end: 20080521
  5. METHYLPREDNISOLONE [Suspect]
     Route: 048
     Dates: start: 20080522, end: 20090805
  6. MOBIC [Concomitant]
     Indication: RHEUMATOID ARTHRITIS
     Route: 048
     Dates: start: 20070611, end: 20090805
  7. PARIET [Concomitant]
     Indication: REFLUX OESOPHAGITIS
     Route: 048
  8. KLARICID [Concomitant]
     Indication: BRONCHITIS CHRONIC
     Route: 048
  9. TORASEMIDE [Concomitant]
     Indication: HYPERTENSION
     Route: 048
  10. BONALON [Concomitant]
     Indication: OSTEOPOROSIS
     Route: 048
  11. KALIMATE [Concomitant]
     Indication: HYPERKALAEMIA
     Route: 048
  12. OLMETEC [Concomitant]
     Indication: HYPERTENSION
     Route: 048

REACTIONS (7)
  - ALTERED STATE OF CONSCIOUSNESS [None]
  - CARDIO-RESPIRATORY ARREST [None]
  - LUNG INFECTION PSEUDOMONAL [None]
  - NERVOUS SYSTEM DISORDER [None]
  - PNEUMONIA ESCHERICHIA [None]
  - RENAL FAILURE ACUTE [None]
  - RESPIRATORY FAILURE [None]
